FAERS Safety Report 5238464-6 (Version None)
Quarter: 2007Q1

REPORT INFORMATION
  Report Type: 
  Country: None (occurrence: None)
  Receive Date: 20070215
  Receipt Date: 20070208
  Transmission Date: 20070707
  Serious: Yes (Hospitalization)
  Sender: FDA-Public Use
  Company Number: FR-BRISTOL-MYERS SQUIBB COMPANY-13451984

PATIENT
  Age: 25 Year
  Sex: Female
  Weight: 84 kg

DRUGS (4)
  1. REYATAZ [Suspect]
     Indication: HIV INFECTION
     Route: 048
     Dates: start: 20060627, end: 20060912
  2. NORVIR [Concomitant]
     Indication: HIV INFECTION
     Dates: start: 20060627, end: 20070112
  3. COMBIVIR [Concomitant]
     Dates: start: 20060627, end: 20070112
  4. SAQUINAVIR [Concomitant]
     Dates: start: 20060912, end: 20070112

REACTIONS (2)
  - MALARIA [None]
  - PREGNANCY [None]
